FAERS Safety Report 20034607 (Version 2)
Quarter: 2021Q4

REPORT INFORMATION
  Report Type: Spontaneous
  Country: US (occurrence: US)
  Receive Date: 20211104
  Receipt Date: 20211217
  Transmission Date: 20220303
  Serious: No
  Sender: FDA-Public Use
  Company Number: US-KARYOPHARM-2021KPT001277

PATIENT

DRUGS (27)
  1. XPOVIO [Suspect]
     Active Substance: SELINEXOR
     Indication: Plasma cell myeloma
     Dosage: 60 MG, WEEKLY
     Route: 048
     Dates: start: 20210929, end: 202110
  2. XPOVIO [Suspect]
     Active Substance: SELINEXOR
     Dosage: 60 MG, WEEKLY 3/4
     Route: 048
     Dates: start: 2021, end: 20211117
  3. ACYCLOVIR SODIUM [Concomitant]
     Active Substance: ACYCLOVIR SODIUM
  4. ALLOPURINOL [Concomitant]
     Active Substance: ALLOPURINOL
     Dosage: 100 MG
  5. ARANESP [Concomitant]
     Active Substance: DARBEPOETIN ALFA
  6. AVODART [Concomitant]
     Active Substance: DUTASTERIDE
     Dosage: 0.5 MG
  7. BACTRIM DS [Concomitant]
     Active Substance: SULFAMETHOXAZOLE\TRIMETHOPRIM
     Dosage: 800-160 MG
  8. BUMEX [Concomitant]
     Active Substance: BUMETANIDE
     Dosage: 0.5 MG
  9. CARDURA [Concomitant]
     Active Substance: DOXAZOSIN MESYLATE
     Dosage: 4 MG
  10. DARZALEX [Concomitant]
     Active Substance: DARATUMUMAB
  11. DECADRON [Concomitant]
     Active Substance: DEXAMETHASONE
     Dosage: 4 MG
  12. HYDRALAZINE [Concomitant]
     Active Substance: HYDRALAZINE HYDROCHLORIDE
     Dosage: 50 MG
  13. ISOSORBIDE MONONITRATE [Concomitant]
     Active Substance: ISOSORBIDE MONONITRATE
     Dosage: 30 MG
  14. KYPROLIS [Concomitant]
     Active Substance: CARFILZOMIB
     Dosage: UNK
  15. MAXITROL [Concomitant]
     Active Substance: DEXAMETHASONE\NEOMYCIN SULFATE\POLYMYXIN B SULFATE
  16. METOLAZONE [Concomitant]
     Active Substance: METOLAZONE
     Dosage: 2.5 MG
  17. METOPROLOL [Concomitant]
     Active Substance: METOPROLOL
     Dosage: 50 MG
  18. MUPIROCIN [Concomitant]
     Active Substance: MUPIROCIN
     Dosage: 2 %
  19. POTASSIUM CHLORIDE [Concomitant]
     Active Substance: POTASSIUM CHLORIDE
  20. PRAVASTATIN [Concomitant]
     Active Substance: PRAVASTATIN
     Dosage: 40 MG
  21. PRILOSEC [Concomitant]
     Active Substance: OMEPRAZOLE MAGNESIUM
     Dosage: 40 MG
  22. SENSIPAR [Concomitant]
     Active Substance: CINACALCET HYDROCHLORIDE
     Dosage: 30 MG
  23. SYNTHROID [Concomitant]
     Active Substance: LEVOTHYROXINE SODIUM
     Dosage: 125 UG
  24. TAMSULOSIN [Concomitant]
     Active Substance: TAMSULOSIN
     Dosage: 0.4 MG
  25. WARFARIN [Concomitant]
     Active Substance: WARFARIN
     Dosage: 1 MG
  26. WARFARIN [Concomitant]
     Active Substance: WARFARIN
     Dosage: 5 MG
  27. WARFARIN [Concomitant]
     Active Substance: WARFARIN
     Dosage: 6 MG

REACTIONS (7)
  - Mood swings [Unknown]
  - Hallucination [Unknown]
  - Diarrhoea [Recovering/Resolving]
  - Decreased appetite [Unknown]
  - Haemoglobin decreased [Not Recovered/Not Resolved]
  - Platelet count decreased [Not Recovered/Not Resolved]
  - Mental status changes [Unknown]

NARRATIVE: CASE EVENT DATE: 20210101
